FAERS Safety Report 10777811 (Version 4)
Quarter: 2015Q3

REPORT INFORMATION
  Report Type: Spontaneous
  Country: US (occurrence: US)
  Receive Date: 20150209
  Receipt Date: 20150715
  Transmission Date: 20151125
  Serious: No
  Sender: FDA-Public Use
  Company Number: US-GLAXOSMITHKLINE-A1084735A

PATIENT
  Sex: Female

DRUGS (2)
  1. TYKERB [Suspect]
     Active Substance: LAPATINIB DITOSYLATE
     Indication: BREAST CANCER FEMALE
     Dosage: 1000 MG, 1D
     Route: 065
     Dates: start: 20140719
  2. TYKERB [Suspect]
     Active Substance: LAPATINIB DITOSYLATE
     Dosage: 1000 MG, QD
     Dates: start: 20140718

REACTIONS (6)
  - Dry skin [Not Recovered/Not Resolved]
  - Diarrhoea [Unknown]
  - Functional gastrointestinal disorder [Unknown]
  - Pain of skin [Unknown]
  - Weight decreased [Unknown]
  - Skin exfoliation [Unknown]
